FAERS Safety Report 23135566 (Version 2)
Quarter: 2023Q4

REPORT INFORMATION
  Report Type: Report from Study
  Country: IN (occurrence: IN)
  Receive Date: 20231101
  Receipt Date: 20231115
  Transmission Date: 20240109
  Serious: Yes (Hospitalization)
  Sender: FDA-Public Use
  Company Number: IN-JNJFOC-20231073301

PATIENT
  Age: 70 Year
  Sex: Female
  Weight: 93 kg

DRUGS (38)
  1. AMIVANTAMAB [Suspect]
     Active Substance: AMIVANTAMAB
     Indication: Non-small cell lung cancer metastatic
     Dosage: C1D1
     Route: 042
     Dates: start: 20220404, end: 20220404
  2. AMIVANTAMAB [Suspect]
     Active Substance: AMIVANTAMAB
     Dosage: C1D2  - C25 D1
     Route: 042
     Dates: start: 20220405, end: 20231006
  3. CARBOPLATIN [Concomitant]
     Active Substance: CARBOPLATIN
     Indication: Non-small cell lung cancer metastatic
     Route: 042
     Dates: start: 20220404, end: 20220526
  4. PEMETREXED [Concomitant]
     Active Substance: PEMETREXED
     Indication: Non-small cell lung cancer metastatic
     Route: 042
     Dates: start: 20220404, end: 20220924
  5. GLICLAZIDE [Concomitant]
     Active Substance: GLICLAZIDE
     Indication: Type 2 diabetes mellitus
     Route: 048
     Dates: start: 20220411
  6. ENSURE [Concomitant]
     Active Substance: AMINO ACIDS\DEXTROSE\ELECTROLYTES NOS\SOYBEAN OIL\VITAMINS
     Indication: Hypoalbuminaemia
     Route: 048
     Dates: start: 20220701
  7. LACTULOSE [Concomitant]
     Active Substance: LACTULOSE
     Indication: Constipation
     Route: 048
     Dates: start: 20220720
  8. IVABRADINE [Concomitant]
     Active Substance: IVABRADINE
     Indication: Sinus tachycardia
     Route: 048
     Dates: start: 20220903
  9. IVABRADINE [Concomitant]
     Active Substance: IVABRADINE
     Dosage: 1/2 BD
     Route: 048
     Dates: start: 20230622
  10. WHEY [Concomitant]
     Active Substance: WHEY
     Indication: Hypoalbuminaemia
     Route: 048
     Dates: start: 20230602
  11. TORSEMIDE [Concomitant]
     Active Substance: TORSEMIDE
     Indication: Peripheral swelling
     Route: 048
     Dates: start: 20230613
  12. TORSEMIDE [Concomitant]
     Active Substance: TORSEMIDE
     Indication: Oedema peripheral
     Route: 048
     Dates: start: 20230401
  13. ROSUVASTATIN CALCIUM [Concomitant]
     Active Substance: ROSUVASTATIN CALCIUM
     Indication: Transient ischaemic attack
     Route: 048
     Dates: start: 20230701
  14. ROSUVASTATIN CALCIUM [Concomitant]
     Active Substance: ROSUVASTATIN CALCIUM
     Route: 048
     Dates: start: 20230701
  15. DOXOLIN [Concomitant]
     Indication: Pain in extremity
     Route: 048
     Dates: start: 20230701
  16. TAPAL [TAPENTADOL HYDROCHLORIDE] [Concomitant]
     Indication: Pain in extremity
     Route: 048
     Dates: start: 20230701
  17. TAPAL [TAPENTADOL HYDROCHLORIDE] [Concomitant]
     Indication: Pain
  18. TAPAL [TAPENTADOL HYDROCHLORIDE] [Concomitant]
     Indication: Neuralgia
  19. CAMPHOR\GLYCERIN\MENTHOL\ZINC OXIDE [Concomitant]
     Active Substance: CAMPHOR\GLYCERIN\MENTHOL\ZINC OXIDE
     Indication: Vomiting
     Route: 048
     Dates: start: 20230704
  20. CAMPHOR\GLYCERIN\MENTHOL\ZINC OXIDE [Concomitant]
     Active Substance: CAMPHOR\GLYCERIN\MENTHOL\ZINC OXIDE
     Indication: Nausea
  21. METOCLOPRAMIDE HYDROCHLORIDE [Concomitant]
     Active Substance: METOCLOPRAMIDE HYDROCHLORIDE
     Indication: Nausea
     Route: 048
     Dates: start: 20230704
  22. HALOVATE F [Concomitant]
     Indication: Skin laceration
     Dosage: DOSE 4, UNITS UNSPECIFIED
     Route: 061
     Dates: start: 20230722
  23. NEUROBION [PYRIDOXINE HYDROCHLORIDE;THIAMINE HYDROCHLORIDE] [Concomitant]
     Indication: Neuropathy peripheral
     Route: 048
     Dates: start: 20230722
  24. NEUROBION [PYRIDOXINE HYDROCHLORIDE;THIAMINE HYDROCHLORIDE] [Concomitant]
     Indication: Pain in extremity
     Route: 048
     Dates: start: 20230629
  25. PREGABA NT [Concomitant]
     Indication: Neuropathy peripheral
     Route: 048
     Dates: start: 20230722
  26. BETAMETHASONE DIPROPIONATE;GENTAMICIN SULFATE;ZINC SULFATE [Concomitant]
     Indication: Skin laceration
     Dosage: DOSE 2, UNITS UNSPECIFIED
     Route: 061
     Dates: start: 20230816
  27. NEOSPORIN [Concomitant]
     Active Substance: BACITRACIN ZINC\NEOMYCIN SULFATE\POLYMYXIN B SULFATE
     Indication: Skin laceration
     Route: 061
     Dates: start: 20230816
  28. DOXY PLUS [Concomitant]
     Indication: Skin laceration
     Route: 048
     Dates: start: 20230816
  29. VITAMIN B3 [Concomitant]
     Active Substance: NIACIN
     Indication: Skin laceration
     Route: 048
     Dates: start: 20230816
  30. CITICOLINE;PIRACETAM [Concomitant]
     Indication: Cerebrovascular accident
     Route: 048
     Dates: start: 20231030
  31. MET XL [Concomitant]
     Indication: Chest pain
     Route: 048
     Dates: start: 20231030
  32. SOLAZINE [Concomitant]
     Indication: Cardiac failure
     Dosage: 1/BD
     Route: 048
     Dates: start: 20231030
  33. ASPIRIN [Concomitant]
     Active Substance: ASPIRIN
     Indication: Anticoagulant therapy
     Route: 048
     Dates: start: 20230312
  34. ALBUMIN HUMAN [Concomitant]
     Active Substance: ALBUMIN HUMAN
     Indication: Hypoalbuminaemia
     Route: 042
     Dates: start: 20231031
  35. TIGECYCLINE [Concomitant]
     Active Substance: TIGECYCLINE
     Indication: Urinary tract infection
     Route: 042
     Dates: start: 20231031
  36. LINEZOLID [Concomitant]
     Active Substance: LINEZOLID
     Indication: Skin laceration
     Route: 048
     Dates: start: 20230816
  37. DERMOCALM [Concomitant]
     Indication: Skin laceration
     Route: 061
     Dates: start: 20230816
  38. NICOTINAMIDE [Concomitant]
     Active Substance: NIACINAMIDE
     Indication: Skin laceration
     Route: 048
     Dates: start: 20230816

REACTIONS (1)
  - Cerebrovascular accident [Not Recovered/Not Resolved]

NARRATIVE: CASE EVENT DATE: 20231024
